FAERS Safety Report 4292757-8 (Version None)
Quarter: 2004Q1

REPORT INFORMATION
  Report Type: 
  Country: None (occurrence: None)
  Receive Date: 20040210
  Receipt Date: 20040131
  Transmission Date: 20041129
  Serious: Yes (Hospitalization)
  Sender: FDA-Public Use
  Company Number: 2003SE03915

PATIENT
  Age: 72 Year
  Sex: Male

DRUGS (8)
  1. TAMOXIFEN [Suspect]
     Indication: PROSTATE CANCER
     Dosage: 20 MG DAILY PO
     Route: 048
     Dates: start: 20021213, end: 20030517
  2. CASODEX [Suspect]
     Indication: PROSTATE CANCER
     Dosage: 150 MG DAILY PO
     Route: 048
     Dates: start: 20021213
  3. KREDEX [Concomitant]
  4. ALBYL [Concomitant]
  5. NITROGLYCERIN [Concomitant]
  6. DILTIAZEM [Concomitant]
  7. ZOCOR [Concomitant]
  8. VIOXX [Concomitant]

REACTIONS (2)
  - ANGINA PECTORIS [None]
  - DISEASE PROGRESSION [None]
